FAERS Safety Report 5658163-6 (Version None)
Quarter: 2008Q1

REPORT INFORMATION
  Report Type: 
  Country: None (occurrence: None)
  Receive Date: 20080310
  Receipt Date: 20070104
  Transmission Date: 20080703
  Serious: No
  Sender: FDA-Public Use
  Company Number: US-BAYER-200710049BCC

PATIENT
  Age: 22 Year
  Sex: Female
  Weight: 47 kg

DRUGS (3)
  1. ALEVE [Suspect]
     Indication: DRUG USE FOR UNKNOWN INDICATION
     Dosage: TOTAL DAILY DOSE: 1320 MG  UNIT DOSE: 220 MG
     Route: 048
     Dates: start: 20070103
  2. VICODIN [Concomitant]
     Indication: WISDOM TEETH REMOVAL
  3. MOTRIN [Concomitant]
     Indication: WISDOM TEETH REMOVAL
     Dates: start: 20070101

REACTIONS (1)
  - NO ADVERSE EVENT [None]
